FAERS Safety Report 6969243-7 (Version None)
Quarter: 2010Q3

REPORT INFORMATION
  Report Type: 
  Country: None (occurrence: None)
  Receive Date: 20100902
  Receipt Date: 20100831
  Transmission Date: 20110219
  Serious: Yes (Other)
  Sender: FDA-Public Use
  Company Number: IND1-US-2009-0052

PATIENT
  Age: 49 Year
  Sex: Male

DRUGS (5)
  1. INDOMETACIN (INDOMETACIN) (UNKNOWN) (INDOMETACIN) [Suspect]
     Indication: ARTHRALGIA
     Route: 048
  2. TMC 125 (TABLETS), 7 IL 7200 [Suspect]
     Indication: HIV INFECTION
     Dosage: 200 MG (100 MG, 2 IN 1 D)
     Route: 048
     Dates: start: 20080925, end: 20081014
  3. TMC 125 (TABLETS), 7 IL 7200 [Suspect]
     Indication: HIV INFECTION
     Dosage: 200 MG (100 MG, 2 IN 1 D)
     Route: 048
     Dates: start: 20080112
  4. LECARNIDIPINE [Concomitant]
  5. IRBESARTAN [Concomitant]

REACTIONS (3)
  - DRUG INTERACTION [None]
  - FOCAL SEGMENTAL GLOMERULOSCLEROSIS [None]
  - NEPHROPATHY TOXIC [None]
